FAERS Safety Report 6136166-5 (Version None)
Quarter: 2009Q1

REPORT INFORMATION
  Report Type: 
  Country: None (occurrence: None)
  Receive Date: 20090325
  Receipt Date: 20090308
  Transmission Date: 20090719
  Serious: Yes (Other)
  Sender: FDA-Public Use
  Company Number: 2007S1005444

PATIENT
  Age: 73 Year
  Sex: Female
  Weight: 70.3075 kg

DRUGS (5)
  1. PHOSPHOSODA FLAVOR NOT SPECIFIED [Suspect]
     Indication: COLONOSCOPY
     Dosage: PO
     Route: 048
     Dates: start: 20041220, end: 20041220
  2. GLUCOSAMINE/CHONDROITIN/01625901 [Concomitant]
  3. VITAMINS/90003601/ [Concomitant]
  4. MINERALS NOS [Concomitant]
  5. NSAID'S [Concomitant]

REACTIONS (3)
  - DRUG TOXICITY [None]
  - RENAL FAILURE CHRONIC [None]
  - RENAL TUBULAR NECROSIS [None]
